FAERS Safety Report 16805407 (Version 1)
Quarter: 2019Q3

REPORT INFORMATION
  Report Type: Spontaneous
  Country: US (occurrence: US)
  Receive Date: 20190913
  Receipt Date: 20190913
  Transmission Date: 20191005
  Serious: No
  Sender: FDA-Public Use
  Company Number: US-AKRON, INC.-2074432

PATIENT
  Sex: Female

DRUGS (1)
  1. AK-FLUOR [Suspect]
     Active Substance: FLUORESCEIN SODIUM

REACTIONS (5)
  - Erythema [Unknown]
  - Blister [Unknown]
  - Injection site extravasation [Unknown]
  - Swelling [Unknown]
  - Chemical burn [Unknown]
